FAERS Safety Report 6993092-7 (Version None)
Quarter: 2010Q3

REPORT INFORMATION
  Report Type: 
  Country: None (occurrence: None)
  Receive Date: 20100917
  Receipt Date: 20100309
  Transmission Date: 20110219
  Serious: Yes (Other)
  Sender: FDA-Public Use
  Company Number: US-ASTRAZENECA-2009SE16586

PATIENT
  Age: 56 Year
  Sex: Female
  Weight: 52.2 kg

DRUGS (10)
  1. SEROQUEL [Suspect]
     Indication: MAJOR DEPRESSION
     Route: 048
     Dates: start: 20010101, end: 20020301
  2. SEROQUEL [Suspect]
     Indication: DEPRESSION
     Route: 048
     Dates: start: 20010101, end: 20020301
  3. VYTORIN [Concomitant]
     Indication: BLOOD CHOLESTEROL INCREASED
     Dosage: 10-80 MG
  4. VYTORIN [Concomitant]
     Indication: HYPERLIPIDAEMIA
     Dosage: 10-80 MG
  5. BYETTA [Concomitant]
     Indication: HYPERGLYCAEMIA
     Dates: start: 20080101
  6. CLOZARIL [Concomitant]
     Dates: start: 20030101
  7. GEODON [Concomitant]
     Dosage: 40 MG TO 80 MG
     Dates: start: 20020501
  8. ZYPREXA [Concomitant]
  9. WELLBUTRIN [Concomitant]
  10. PHENTERMINE [Concomitant]
     Indication: WEIGHT
     Dates: start: 20090101

REACTIONS (4)
  - OSTEOPOROSIS [None]
  - RADICULAR PAIN [None]
  - SUICIDE ATTEMPT [None]
  - TYPE 2 DIABETES MELLITUS [None]
